FAERS Safety Report 24955459 (Version 1)
Quarter: 2025Q1

REPORT INFORMATION
  Report Type: Spontaneous
  Country: US (occurrence: None)
  Receive Date: 20250210
  Receipt Date: 20250210
  Transmission Date: 20250408
  Serious: No
  Sender: FDA-CTU
  Company Number: None

PATIENT

DRUGS (1)
  1. OLUMIANT [Suspect]
     Active Substance: BARICITINIB

REACTIONS (5)
  - Back pain [None]
  - Pain in extremity [None]
  - Gait disturbance [None]
  - Fatigue [None]
  - Muscular weakness [None]
